FAERS Safety Report 4699093-6 (Version None)
Quarter: 2005Q2

REPORT INFORMATION
  Report Type: 
  Country: None (occurrence: None)
  Receive Date: 20050624
  Receipt Date: 20020926
  Transmission Date: 20051028
  Serious: Yes (Death, Hospitalization)
  Sender: FDA-Public Use
  Company Number: PHBS2002JP11720

PATIENT
  Age: 61 Year
  Sex: Female
  Weight: 61 kg

DRUGS (5)
  1. LOCHOL [Suspect]
     Indication: HYPERCHOLESTEROLAEMIA
     Dosage: 20 MG/DAY
     Route: 048
     Dates: start: 20010904
  2. LOCHOL [Suspect]
     Dosage: 40 MG/DAY
     Route: 048
     Dates: end: 20020910
  3. TANATRIL ^TANABE^ [Concomitant]
     Dates: start: 20010904
  4. NORVASC [Concomitant]
     Dates: start: 20010904
  5. KETAS [Concomitant]
     Dates: start: 20010904

REACTIONS (8)
  - BRAIN NEOPLASM [None]
  - CEREBRAL INFARCTION [None]
  - FLANK PAIN [None]
  - HEPATIC FUNCTION ABNORMAL [None]
  - HEPATIC NEOPLASM [None]
  - RENAL DISORDER [None]
  - RENAL NEOPLASM [None]
  - SPEECH DISORDER [None]
